FAERS Safety Report 12148133 (Version 1)
Quarter: 2016Q1

REPORT INFORMATION
  Report Type: Spontaneous
  Country: US (occurrence: US)
  Receive Date: 20160304
  Receipt Date: 20160304
  Transmission Date: 20160526
  Serious: Yes (Hospitalization)
  Sender: FDA-Public Use
  Company Number: US-GLAXOSMITHKLINE-US2016031040

PATIENT
  Sex: Female

DRUGS (1)
  1. SUMATRIPTAN SUCCINATE NASAL SPRAY [Suspect]
     Active Substance: SUMATRIPTAN SUCCINATE
     Indication: HEADACHE

REACTIONS (1)
  - Drug ineffective [Unknown]
